FAERS Safety Report 4296096-0 (Version None)
Quarter: 2004Q1

REPORT INFORMATION
  Report Type: 
  Country: None (occurrence: None)
  Receive Date: 20040212
  Receipt Date: 20040202
  Transmission Date: 20041129
  Serious: Yes (Life-Threatening)
  Sender: FDA-Public Use
  Company Number: HQWYE792102FEB04

PATIENT
  Age: 10 Day
  Sex: Female

DRUGS (3)
  1. INDERAL [Suspect]
     Dosage: FROM 8 DAYS OLD TO 10 DAYS OLD
  2. NITROGLYCERIN [Concomitant]
  3. METHIMAZOLE [Concomitant]

REACTIONS (3)
  - CONDITION AGGRAVATED [None]
  - HYPOTHYROIDISM [None]
  - NEONATAL CARDIAC FAILURE [None]
